FAERS Safety Report 5641897-7 (Version None)
Quarter: 2008Q1

REPORT INFORMATION
  Report Type: 
  Country: None (occurrence: None)
  Receive Date: 20080131
  Receipt Date: 20071012
  Transmission Date: 20080703
  Serious: No
  Sender: FDA-Public Use
  Company Number: 163-21880-07100765

PATIENT
  Age: 58 Year
  Sex: Male

DRUGS (4)
  1. REVLIMID [Suspect]
     Indication: MULTIPLE MYELOMA
     Dosage: 10 MG, DAILY X 21 DAYS, ORAL
     Route: 048
     Dates: start: 20071012
  2. VINCRISTINE [Concomitant]
  3. DOXEL [Concomitant]
  4. DECADRON [Concomitant]

REACTIONS (1)
  - NEOPLASM PROGRESSION [None]
